FAERS Safety Report 7654233-1 (Version None)
Quarter: 2011Q3

REPORT INFORMATION
  Report Type: 
  Country: None (occurrence: None)
  Receive Date: 20110803
  Receipt Date: 20110727
  Transmission Date: 20111222
  Serious: Yes (Other)
  Sender: FDA-Public Use
  Company Number: US-SANOFI-AVENTIS-2011SA048314

PATIENT
  Sex: Male

DRUGS (4)
  1. LANTUS [Suspect]
     Dosage: DOSE:15 UNIT(S)
     Route: 058
  2. APIDRA [Suspect]
     Dosage: SLIDING SCALE AS NEEDED FOR BLOOD SUGAR } 150
     Route: 058
     Dates: start: 20060101
  3. OPTICLICK [Suspect]
     Dates: start: 20060101
  4. SOLOSTAR [Suspect]

REACTIONS (2)
  - DIABETIC RETINOPATHY [None]
  - BLOOD GLUCOSE INCREASED [None]
